FAERS Safety Report 4813653-0 (Version None)
Quarter: 2005Q4

REPORT INFORMATION
  Report Type: 
  Country: None (occurrence: None)
  Receive Date: 20051028
  Receipt Date: 20050304
  Transmission Date: 20060501
  Serious: No
  Sender: FDA-Public Use
  Company Number: US-GLAXOSMITHKLINE-A0548414A

PATIENT
  Age: 64 Year
  Sex: Female

DRUGS (6)
  1. ADVAIR DISKUS 100/50 [Suspect]
     Indication: ASTHMA
     Route: 055
     Dates: start: 20020101, end: 20020101
  2. ESTRADIOL [Concomitant]
  3. THYROXIN [Concomitant]
  4. TYLENOL W/ CODEINE [Concomitant]
  5. ALLERGY MEDICATION [Concomitant]
  6. ALBUTEROL [Concomitant]

REACTIONS (1)
  - PRURITUS [None]
